FAERS Safety Report 10110514 (Version 1)
Quarter: 2014Q2

REPORT INFORMATION
  Report Type: Spontaneous
  Country: US (occurrence: US)
  Receive Date: 20140425
  Receipt Date: 20140425
  Transmission Date: 20141212
  Serious: Yes (Hospitalization, Other)
  Sender: FDA-Public Use
  Company Number: US-PURDUE-USA-2014-0113179

PATIENT
  Age: 57 Year
  Sex: Male

DRUGS (3)
  1. BUTRANS [Suspect]
     Indication: PAIN
     Dosage: 10 MCG/HR, WEEKLY
     Route: 062
     Dates: start: 20140224, end: 201404
  2. BUTRANS [Suspect]
     Dosage: 10 MCG/HR, WEEKLY
     Route: 062
     Dates: start: 201404
  3. BUTRANS [Suspect]
     Dosage: 5 MCG/HR, WEEKLY
     Route: 062
     Dates: start: 201404

REACTIONS (4)
  - Hydronephrosis [Unknown]
  - Haematuria [Unknown]
  - Urethral stenosis [Unknown]
  - Drug ineffective [Unknown]
